FAERS Safety Report 6765897-9 (Version None)
Quarter: 2010Q2

REPORT INFORMATION
  Report Type: 
  Country: None (occurrence: None)
  Receive Date: 20100611
  Receipt Date: 20100601
  Transmission Date: 20101027
  Serious: Yes (Hospitalization)
  Sender: FDA-Public Use
  Company Number: US-JNJFOC-20100601580

PATIENT
  Sex: Male
  Weight: 120.2 kg

DRUGS (1)
  1. REMICADE [Suspect]
     Indication: CROHN'S DISEASE
     Dosage: RECEIVED INFLIXIMAB EVERY 6 WEEKS FOR OVER A YEAR (16 INFUSIONS)
     Route: 042

REACTIONS (1)
  - LEUKAEMIA [None]
